FAERS Safety Report 19245110 (Version 1)
Quarter: 2021Q2

REPORT INFORMATION
  Report Type: Report from Study
  Country: None (occurrence: US)
  Receive Date: 20210512
  Receipt Date: 20210512
  Transmission Date: 20210717
  Serious: Yes (Hospitalization, Other)
  Sender: FDA-Public Use
  Company Number: US-ABBVIE-21K-163-3899679-00

PATIENT
  Sex: Male

DRUGS (1)
  1. IMBRUVICA [Suspect]
     Active Substance: IBRUTINIB
     Indication: CHRONIC LYMPHOCYTIC LEUKAEMIA
     Route: 048

REACTIONS (7)
  - Pneumonia [Unknown]
  - Skin abrasion [Unknown]
  - Fall [Unknown]
  - Sepsis [Unknown]
  - Staphylococcal infection [Unknown]
  - Localised infection [Unknown]
  - Multiple organ dysfunction syndrome [Unknown]
